FAERS Safety Report 23765298 (Version 4)
Quarter: 2024Q3

REPORT INFORMATION
  Report Type: Report from Study
  Country: US (occurrence: US)
  Receive Date: 20240420
  Receipt Date: 20240710
  Transmission Date: 20241017
  Serious: Yes (Hospitalization, Other)
  Sender: UCB
  Company Number: US-UCBSA-2023044843

PATIENT
  Sex: Female
  Weight: 19.05 kg

DRUGS (10)
  1. FINTEPLA [Suspect]
     Active Substance: FENFLURAMINE
     Indication: Severe myoclonic epilepsy of infancy
     Dosage: 2 MILLILITER, 2X/DAY (BID)
     Route: 048
     Dates: start: 20230906
  2. FINTEPLA [Suspect]
     Active Substance: FENFLURAMINE
     Indication: Epilepsy
     Dosage: 2 MILLILITER, 2X/DAY (BID)
     Route: 048
     Dates: start: 2023
  3. FINTEPLA [Suspect]
     Active Substance: FENFLURAMINE
     Dosage: 2 MILLILITER, 2X/DAY (BID)
     Route: 048
     Dates: start: 2023
  4. FINTEPLA [Suspect]
     Active Substance: FENFLURAMINE
     Dosage: 2 MILLILITER, 2X/DAY (BID)
     Route: 048
     Dates: start: 2023
  5. FINTEPLA [Suspect]
     Active Substance: FENFLURAMINE
     Dosage: 2.5 MILLILITER, 2X/DAY (BID)
     Route: 048
     Dates: start: 202309
  6. FINTEPLA [Suspect]
     Active Substance: FENFLURAMINE
     Dosage: 2.5 MILLILITER, 2X/DAY (BID)
     Route: 048
     Dates: start: 20231209
  7. FINTEPLA [Suspect]
     Active Substance: FENFLURAMINE
     Dosage: 2.5 MILLILITER, 2X/DAY (BID)
     Route: 048
     Dates: start: 2023
  8. FINTEPLA [Suspect]
     Active Substance: FENFLURAMINE
     Dosage: 3.7 MILLILITER, 2X/DAY (BID)
     Route: 048
     Dates: start: 20240409
  9. FINTEPLA [Suspect]
     Active Substance: FENFLURAMINE
     Dosage: 3.7 MILLILITER, 2X/DAY (BID) FOR 30 DAYS
     Route: 048
  10. FINTEPLA [Suspect]
     Active Substance: FENFLURAMINE
     Dosage: 3.7 MILLILITER, 2X/DAY (BID)

REACTIONS (7)
  - Seizure [Recovered/Resolved]
  - Influenza [Recovered/Resolved]
  - Ear infection [Recovered/Resolved]
  - Somnolence [Not Recovered/Not Resolved]
  - Hypersomnia [Not Recovered/Not Resolved]
  - Middle insomnia [Not Recovered/Not Resolved]
  - Off label use [Unknown]

NARRATIVE: CASE EVENT DATE: 20230101
